FAERS Safety Report 14252295 (Version 3)
Quarter: 2017Q4

REPORT INFORMATION
  Report Type: Spontaneous
  Country: FI (occurrence: FI)
  Receive Date: 20171205
  Receipt Date: 20171220
  Transmission Date: 20180321
  Serious: Yes (Death, Other)
  Sender: FDA-Public Use
  Company Number: FI-MYLANLABS-2017M1076453

PATIENT
  Age: 20 Year
  Sex: Female

DRUGS (7)
  1. MIDAZOLAM [Suspect]
     Active Substance: MIDAZOLAM HYDROCHLORIDE
     Indication: SEIZURE
     Dosage: UNK
     Route: 065
  2. VALPROIC ACID. [Suspect]
     Active Substance: VALPROIC ACID
     Indication: SEIZURE
     Route: 065
  3. GABAPENTIN. [Suspect]
     Active Substance: GABAPENTIN
     Indication: SEIZURE
     Dosage: UNK
     Route: 065
  4. TOPIRAMATE. [Suspect]
     Active Substance: TOPIRAMATE
     Indication: SEIZURE
     Dosage: UNK
     Route: 065
  5. CLONAZEPAM. [Suspect]
     Active Substance: CLONAZEPAM
     Indication: SEIZURE
     Dosage: UNK
  6. FOSPHENYTOIN [Suspect]
     Active Substance: FOSPHENYTOIN\FOSPHENYTOIN SODIUM
     Indication: SEIZURE
     Dosage: UNK
     Route: 065
  7. THIOPENTONE                        /00053401/ [Suspect]
     Active Substance: THIOPENTAL
     Indication: SEIZURE
     Dosage: UNK
     Route: 065

REACTIONS (18)
  - Hepatic fibrosis [Fatal]
  - Ammonia increased [Fatal]
  - Blood bilirubin increased [Fatal]
  - Alanine aminotransferase increased [Fatal]
  - Alpers^ disease [Fatal]
  - Hepatic necrosis [Fatal]
  - Blood lactic acid increased [Fatal]
  - Blood alkaline phosphatase increased [Fatal]
  - Coma hepatic [Fatal]
  - Drug resistance [Unknown]
  - Hepatic steatosis [Fatal]
  - Hepatic failure [Fatal]
  - Bilirubin conjugated increased [Fatal]
  - International normalised ratio increased [Fatal]
  - Cerebellar atrophy [Fatal]
  - Acute respiratory distress syndrome [Fatal]
  - Somnolence [Fatal]
  - Cell death [Fatal]
